FAERS Safety Report 14728100 (Version 4)
Quarter: 2025Q2

REPORT INFORMATION
  Report Type: Report from Study
  Country: US (occurrence: US)
  Receive Date: 20180406
  Receipt Date: 20250622
  Transmission Date: 20250717
  Serious: Yes (Death, Life-Threatening, Hospitalization, Other)
  Sender: AUROBINDO
  Company Number: US-MYLANLABS-2018M1021643

PATIENT
  Age: 12 Year
  Sex: Female

DRUGS (11)
  1. METHOTREXATE [Suspect]
     Active Substance: METHOTREXATE
     Indication: B-cell type acute leukaemia
     Route: 037
  2. METHOTREXATE [Suspect]
     Active Substance: METHOTREXATE
     Indication: Acute lymphocytic leukaemia
  3. DEXAMETHASONE [Suspect]
     Active Substance: DEXAMETHASONE
     Indication: B-cell type acute leukaemia
     Route: 048
  4. BORTEZOMIB [Suspect]
     Active Substance: BORTEZOMIB
     Indication: B precursor type acute leukaemia
     Route: 042
  5. BORTEZOMIB [Suspect]
     Active Substance: BORTEZOMIB
     Indication: Acute lymphocytic leukaemia recurrent
  6. MITOXANTRONE [Suspect]
     Active Substance: MITOXANTRONE HYDROCHLORIDE
     Indication: B precursor type acute leukaemia
     Route: 042
  7. MITOXANTRONE [Suspect]
     Active Substance: MITOXANTRONE HYDROCHLORIDE
     Indication: Acute lymphocytic leukaemia recurrent
  8. VINCRISTINE [Suspect]
     Active Substance: VINCRISTINE
     Indication: B precursor type acute leukaemia
     Route: 042
  9. VINCRISTINE [Suspect]
     Active Substance: VINCRISTINE
     Indication: Acute lymphocytic leukaemia recurrent
  10. PEG/L-ASPARAGINASE [Suspect]
     Active Substance: PEGASPARGASE
     Indication: B precursor type acute leukaemia
     Route: 065
  11. PEG/L-ASPARAGINASE [Suspect]
     Active Substance: PEGASPARGASE
     Indication: Acute lymphocytic leukaemia recurrent

REACTIONS (4)
  - Pneumonia [Fatal]
  - Fungal infection [Fatal]
  - Neutropenia [Recovered/Resolved]
  - Thrombocytopenia [Recovered/Resolved]
